FAERS Safety Report 9679967 (Version 2)
Quarter: 2013Q4

REPORT INFORMATION
  Report Type: Report from Study
  Country: FR (occurrence: FR)
  Receive Date: 20131110
  Receipt Date: 20131110
  Transmission Date: 20140711
  Serious: Yes (Hospitalization, Other)
  Sender: FDA-Public Use
  Company Number: PHHO2013FR011560

PATIENT
  Sex: 0

DRUGS (11)
  1. MYFORTIC [Suspect]
     Dosage: 740 MG, UNK
     Route: 048
     Dates: start: 20130807, end: 20131023
  2. PROGRAF [Suspect]
     Indication: LIVER TRANSPLANT
     Dosage: 16 MG, UNK
     Route: 048
     Dates: start: 20130808, end: 20131023
  3. ROVALCYTE [Suspect]
     Indication: CYTOMEGALOVIRUS INFECTION
     Dosage: 1800 MG, UNK
     Route: 048
     Dates: start: 20130926
  4. INEXIUM//ESOMEPRAZOLE MAGNESIUM [Concomitant]
     Indication: OESOPHAGITIS
     Dosage: 20 MG, UNK
     Route: 048
     Dates: start: 20130808
  5. EUPRESSYL [Concomitant]
     Indication: HYPERTENSION
     Dosage: 90 MG, QD
     Route: 048
     Dates: start: 20130819
  6. EUPRESSYL [Concomitant]
     Dosage: 180 UNK, UNK
     Route: 048
     Dates: start: 201308
  7. SPIRONOLACTONE [Concomitant]
     Dosage: 75 MG, QD
     Route: 048
     Dates: start: 20130829
  8. AMLODIPINE [Concomitant]
     Dosage: 10 MG, QD
     Route: 048
     Dates: start: 20130822
  9. SOLUPRED [Concomitant]
     Dosage: 10 MG, UNK
     Route: 048
     Dates: start: 20130812
  10. CORTANCYL [Concomitant]
     Dosage: 1 MG, UNK
     Route: 048
     Dates: start: 20130831
  11. AMLOR [Concomitant]
     Indication: HYPERTENSION
     Dosage: 20 MG, UNK
     Route: 048
     Dates: start: 20130822

REACTIONS (5)
  - Agranulocytosis [Recovering/Resolving]
  - Posterior reversible encephalopathy syndrome [Recovered/Resolved]
  - Sinusitis aspergillus [Recovering/Resolving]
  - Pneumococcal infection [Recovering/Resolving]
  - Neutropenia [Recovering/Resolving]
